FAERS Safety Report 11980121 (Version 1)
Quarter: 2016Q1

REPORT INFORMATION
  Report Type: Spontaneous
  Country: CA (occurrence: CA)
  Receive Date: 20160129
  Receipt Date: 20160129
  Transmission Date: 20160526
  Serious: Yes (Hospitalization)
  Sender: FDA-Public Use
  Company Number: CA-TEVA-629778ACC

PATIENT
  Age: 72 Year
  Sex: Male
  Weight: 97.61 kg

DRUGS (13)
  1. CO PREGABALIN [Concomitant]
  2. NOVOLIN GE 50/50 PENFILL 3 ML PENFILL CARTRIDGE [Concomitant]
  3. TYLENOL [Concomitant]
     Active Substance: ACETAMINOPHEN
  4. RATIO-MOMETASONE [Concomitant]
  5. AMLODIPINE [Concomitant]
     Active Substance: AMLODIPINE BESYLATE
  6. JAMP-ASA 81MG EC [Concomitant]
  7. TEVA-FENOFIBRATE-S [Suspect]
     Active Substance: FENOFIBRATE
     Indication: HYPERCHOLESTEROLAEMIA
     Dosage: 160 MILLIGRAM DAILY;
     Route: 048
  8. NOVORAPID [Concomitant]
     Active Substance: INSULIN ASPART
  9. RAMIPRIL-10 [Concomitant]
  10. SOLYSTAT [Concomitant]
  11. ROSUVASTATIN [Suspect]
     Active Substance: ROSUVASTATIN
     Indication: HYPERCHOLESTEROLAEMIA
     Dosage: 10 MILLIGRAM DAILY;
     Route: 065
  12. APO METOPROLOL [Concomitant]
  13. APO OXAZEPAM TAB 15MG [Concomitant]

REACTIONS (7)
  - Dizziness [Unknown]
  - Fatigue [Unknown]
  - Aspartate aminotransferase increased [Unknown]
  - Asthenia [Unknown]
  - Blood creatine phosphokinase increased [Unknown]
  - Blood lactate dehydrogenase increased [Unknown]
  - Headache [Unknown]
